FAERS Safety Report 17806773 (Version 1)
Quarter: 2020Q2

REPORT INFORMATION
  Report Type: Spontaneous
  Country: FR (occurrence: FR)
  Receive Date: 20200520
  Receipt Date: 20200520
  Transmission Date: 20200714
  Serious: Yes (Other)
  Sender: FDA-Public Use
  Company Number: FR-SUN PHARMACEUTICAL INDUSTRIES LTD-2020RR-247693

PATIENT
  Age: 40 Year
  Sex: Male

DRUGS (6)
  1. TARGOCID [Suspect]
     Active Substance: TEICOPLANIN
     Indication: INFECTION
     Dosage: NON RENSEIGNEE ()
     Route: 042
     Dates: start: 20191126
  2. SERESTA [Suspect]
     Active Substance: OXAZEPAM
     Indication: ANXIETY
     Dosage: NON RENSEIGNEE ()
     Route: 048
     Dates: start: 20191120
  3. XARELTO [Suspect]
     Active Substance: RIVAROXABAN
     Indication: THROMBOPHLEBITIS
     Dosage: 2 DF, QD (2 DOSES / DAY)
     Route: 048
     Dates: start: 20191122
  4. GABAPENTINE [Suspect]
     Active Substance: GABAPENTIN
     Indication: NEURALGIA
     Dosage: NON RENSEIGNEE
     Route: 048
     Dates: start: 20191129
  5. NICOPATCH [Suspect]
     Active Substance: NICOTINE
     Indication: EX-TOBACCO USER
     Dosage: NON RENSEIGNEE ()
     Route: 062
     Dates: start: 20191126
  6. IMOVANE [Suspect]
     Active Substance: ZOPICLONE
     Indication: INSOMNIA
     Dosage: NON RENSEIGNEE ()
     Route: 048
     Dates: start: 20191129

REACTIONS (1)
  - Thrombocytopenia [Not Recovered/Not Resolved]

NARRATIVE: CASE EVENT DATE: 20191206
